FAERS Safety Report 4854460-2 (Version None)
Quarter: 2005Q4

REPORT INFORMATION
  Report Type: 
  Country: None (occurrence: None)
  Receive Date: 20051213
  Receipt Date: 20051130
  Transmission Date: 20060501
  Serious: Yes (Life-Threatening)
  Sender: FDA-Public Use
  Company Number: 2005163469

PATIENT
  Age: 44 Year
  Sex: Male

DRUGS (16)
  1. LIPITOR [Suspect]
     Indication: HYPERLIPIDAEMIA
     Dosage: ORAL
     Route: 048
  2. COTRIM [Suspect]
     Indication: ILL-DEFINED DISORDER
     Dosage: ORAL
     Route: 048
  3. NEORAL [Suspect]
     Indication: ILL-DEFINED DISORDER
     Dosage: ORAL
     Route: 048
  4. ALFAROL (ALFACALCIDOL) [Concomitant]
  5. MUCOSTA (REBAMIPIDE) [Concomitant]
  6. LEDERCORT (TRIAMCINOLONE) [Concomitant]
  7. ASPIRIN [Concomitant]
  8. LOXONIN (LOXOPROFEN SODIUM) [Concomitant]
  9. MERISLON (BETAHISTINE HYDROCHLORIDE) [Concomitant]
  10. RABEPRAZOLE SODIUM [Concomitant]
  11. TOLEDOMIN (MILNACIPRAN HYDROCHLORIDE) [Concomitant]
  12. ALPRAZOLAM [Concomitant]
  13. TRILAFON [Concomitant]
  14. AKINETON [Concomitant]
  15. LENDORM [Concomitant]
  16. ROHYPNOL (FLUNITRAZEPAM) [Concomitant]

REACTIONS (5)
  - DYSPNOEA [None]
  - EJECTION FRACTION DECREASED [None]
  - HYPOXIA [None]
  - MYOCARDITIS [None]
  - ORTHOPNOEA [None]
